FAERS Safety Report 15515647 (Version 1)
Quarter: 2018Q4

REPORT INFORMATION
  Report Type: Not Available
  Country: US (occurrence: US)
  Receive Date: 20181017
  Receipt Date: 20181017
  Transmission Date: 20190205
  Serious: No
  Sender: FDA-Public Use
  Company Number: US-NEUROCRINE BIOSCIENCES INC.-2018NBI02964

PATIENT
  Age: 73 Year
  Sex: Female

DRUGS (8)
  1. CLONAZEPAM. [Concomitant]
     Active Substance: CLONAZEPAM
     Route: 048
  2. ZIPRASIDONE. [Concomitant]
     Active Substance: ZIPRASIDONE
  3. LAMOTRIGINE. [Concomitant]
     Active Substance: LAMOTRIGINE
  4. LAMOTRIGINE. [Concomitant]
     Active Substance: LAMOTRIGINE
     Dosage: AT NIGHT
  5. ZIPRASIDONE. [Concomitant]
     Active Substance: ZIPRASIDONE
  6. ZIPRASIDONE. [Concomitant]
     Active Substance: ZIPRASIDONE
  7. INGREZZA [Suspect]
     Active Substance: VALBENAZINE
     Indication: TARDIVE DYSKINESIA
     Route: 048
     Dates: start: 20180924
  8. AMITIZA [Concomitant]
     Active Substance: LUBIPROSTONE
     Indication: CONSTIPATION

REACTIONS (4)
  - Tremor [Unknown]
  - Insomnia [Unknown]
  - Somnolence [Unknown]
  - Restlessness [Unknown]

NARRATIVE: CASE EVENT DATE: 201809
